FAERS Safety Report 7670188-8 (Version None)
Quarter: 2011Q3

REPORT INFORMATION
  Report Type: 
  Country: None (occurrence: None)
  Receive Date: 20110808
  Receipt Date: 20110729
  Transmission Date: 20111222
  Serious: Yes (Other)
  Sender: FDA-Public Use
  Company Number: US-ASTRAZENECA-2011SE15124

PATIENT
  Age: 60 Year
  Sex: Male

DRUGS (2)
  1. NEXIUM [Suspect]
     Route: 048
  2. PRILOSEC [Suspect]
     Route: 048

REACTIONS (6)
  - NEOPLASM [None]
  - MALAISE [None]
  - WRONG DRUG ADMINISTERED [None]
  - CEREBROVASCULAR ACCIDENT [None]
  - TUMOUR EXCISION [None]
  - ADVERSE DRUG REACTION [None]
